FAERS Safety Report 8192649-8 (Version None)
Quarter: 2012Q1

REPORT INFORMATION
  Report Type: 
  Country: None (occurrence: None)
  Receive Date: 20120221
  Receipt Date: 20111121
  Transmission Date: 20120608
  Serious: No
  Sender: FDA-Public Use
  Company Number: 1000025676

PATIENT
  Age: 54 Year
  Sex: Female

DRUGS (6)
  1. LORAZEPAM [Concomitant]
  2. LIPITOR [Concomitant]
  3. LISINOPRIL [Concomitant]
  4. VIIBRYD [Suspect]
     Indication: DEPRESSION
     Dosage: 10 MG (10 MG,1 IN 1 D),ORAL  20 MG (20 MG, 1 IN 1 D),ORAL , 20 MG (10 MG, 2 IN 1 D),ORAL
     Route: 048
     Dates: start: 20111101
  5. VIIBRYD [Suspect]
     Indication: DEPRESSION
     Dosage: 10 MG (10 MG,1 IN 1 D),ORAL  20 MG (20 MG, 1 IN 1 D),ORAL , 20 MG (10 MG, 2 IN 1 D),ORAL
     Route: 048
     Dates: start: 20111001, end: 20111101
  6. VIIBRYD [Suspect]
     Indication: DEPRESSION
     Dosage: 10 MG (10 MG,1 IN 1 D),ORAL  20 MG (20 MG, 1 IN 1 D),ORAL , 20 MG (10 MG, 2 IN 1 D),ORAL
     Route: 048
     Dates: start: 20111001, end: 20111001

REACTIONS (2)
  - AGITATION [None]
  - DIARRHOEA [None]
